FAERS Safety Report 17197063 (Version 1)
Quarter: 2019Q4

REPORT INFORMATION
  Report Type: Spontaneous
  Country: US (occurrence: US)
  Receive Date: 20191224
  Receipt Date: 20191224
  Transmission Date: 20200122
  Serious: No
  Sender: FDA-Public Use
  Company Number: US-SA-2019SA354014

PATIENT
  Age: 69 Year
  Sex: Female

DRUGS (3)
  1. PRALUENT [Suspect]
     Active Substance: ALIROCUMAB
     Indication: CARDIAC DISORDER
  2. PRALUENT [Suspect]
     Active Substance: ALIROCUMAB
     Indication: STENT PLACEMENT
  3. PRALUENT [Suspect]
     Active Substance: ALIROCUMAB
     Indication: BLOOD CHOLESTEROL INCREASED
     Dosage: 75 MG/ML, QOW
     Dates: start: 20190801

REACTIONS (6)
  - Muscle disorder [Unknown]
  - Condition aggravated [Unknown]
  - Inflammation [Unknown]
  - Gait disturbance [Unknown]
  - Musculoskeletal stiffness [Unknown]
  - Pain [Unknown]
